FAERS Safety Report 23124807 (Version 1)
Quarter: 2023Q4

REPORT INFORMATION
  Report Type: Spontaneous
  Country: US (occurrence: None)
  Receive Date: 20231029
  Receipt Date: 20231029
  Transmission Date: 20240110
  Serious: Yes (Disabling)
  Sender: FDA-Public Use
  Company Number: None

PATIENT
  Age: 27 Year
  Sex: Male
  Weight: 81 kg

DRUGS (2)
  1. FINASTERIDE [Suspect]
     Active Substance: FINASTERIDE
     Indication: Androgenetic alopecia
     Dosage: OTHER QUANTITY : 0.25 TABLET(S);?OTHER FREQUENCY : EVERY OTHER DAY;?
     Route: 048
     Dates: start: 20220901, end: 20230101
  2. FISH OIL [Concomitant]
     Active Substance: FISH OIL

REACTIONS (5)
  - Chest pain [None]
  - Gynaecomastia [None]
  - Loss of libido [None]
  - Erectile dysfunction [None]
  - Sexual dysfunction [None]

NARRATIVE: CASE EVENT DATE: 20230115
